FAERS Safety Report 7274976-1 (Version None)
Quarter: 2011Q1

REPORT INFORMATION
  Report Type: 
  Country: None (occurrence: None)
  Receive Date: 20110202
  Receipt Date: 20110202
  Transmission Date: 20110831
  Serious: Yes (Hospitalization)
  Sender: FDA-Public Use
  Company Number: None

PATIENT
  Age: 48 Year
  Sex: Male
  Weight: 104 kg

DRUGS (11)
  1. CLONAZEPAM [Concomitant]
  2. REMERON [Concomitant]
  3. MINOCYCLINE HCL [Concomitant]
  4. CETUXIMAB [Suspect]
     Indication: SMALL CELL CARCINOMA
     Dosage: 400 MG/M2, LOADING, IV; 250 MG/M2, IV
     Route: 042
     Dates: start: 20101208, end: 20110105
  5. CETUXIMAB [Suspect]
     Indication: SMALL CELL CARCINOMA
     Dosage: 400 MG/M2, LOADING, IV; 250 MG/M2, IV
     Route: 042
     Dates: start: 20101201
  6. LISINOPRIL [Concomitant]
  7. HYDROXYZINE [Concomitant]
  8. AMLODIPINE [Concomitant]
  9. MULTI-VITAMIN [Concomitant]
  10. OMEPRAZOLE [Concomitant]
  11. PREDNISONE TAB [Concomitant]

REACTIONS (2)
  - DEEP VEIN THROMBOSIS [None]
  - PULMONARY EMBOLISM [None]
